FAERS Safety Report 5759777-5 (Version None)
Quarter: 2008Q2

REPORT INFORMATION
  Report Type: 
  Country: None (occurrence: None)
  Receive Date: 20080605
  Receipt Date: 20080530
  Transmission Date: 20081010
  Serious: Yes (Hospitalization)
  Sender: FDA-Public Use
  Company Number: B0521575A

PATIENT
  Age: 29 Year
  Sex: Male
  Weight: 72 kg

DRUGS (6)
  1. ARIXTRA [Suspect]
     Indication: THROMBOSIS PROPHYLAXIS
     Dosage: 1.5MG PER DAY
     Route: 058
     Dates: start: 20080516, end: 20080516
  2. LOXONIN [Concomitant]
     Route: 048
     Dates: start: 20080515, end: 20080519
  3. MUCOSTA [Concomitant]
     Route: 048
     Dates: start: 20080515, end: 20080519
  4. CEFZON [Concomitant]
     Route: 048
     Dates: start: 20080518, end: 20080519
  5. FERROMIA [Concomitant]
     Route: 048
     Dates: start: 20080501, end: 20080513
  6. CEFAMEZIN [Concomitant]
     Route: 042
     Dates: start: 20080514, end: 20080517

REACTIONS (3)
  - ANAEMIA [None]
  - HEPATIC FUNCTION ABNORMAL [None]
  - POST PROCEDURAL HAEMORRHAGE [None]
